FAERS Safety Report 12592503 (Version 5)
Quarter: 2019Q3

REPORT INFORMATION
  Report Type: Report from Study
  Country: JP (occurrence: JP)
  Receive Date: 20160726
  Receipt Date: 20190801
  Transmission Date: 20191004
  Serious: Yes (Hospitalization, Other)
  Sender: FDA-Public Use
  Company Number: JP-ASTELLAS-2009JP005556

PATIENT
  Age: 25 Year
  Sex: Female
  Weight: 46 kg

DRUGS (106)
  1. MEDROL [Suspect]
     Active Substance: METHYLPREDNISOLONE
     Route: 048
     Dates: start: 20081220, end: 20100824
  2. BAYASPIRIN [Concomitant]
     Active Substance: ASPIRIN
     Indication: PROPHYLAXIS
     Route: 048
  3. EPADEL-S [Concomitant]
     Active Substance: ICOSAPENT ETHYL
     Indication: PROPHYLAXIS
     Route: 048
     Dates: end: 20080707
  4. BONALON [Concomitant]
     Active Substance: ALENDRONATE SODIUM
     Route: 048
     Dates: end: 20100331
  5. BONALON [Concomitant]
     Active Substance: ALENDRONATE SODIUM
     Route: 048
     Dates: start: 20100825, end: 20111026
  6. GLAKAY [Concomitant]
     Active Substance: MENATETRENONE
     Indication: OSTEOPOROSIS
     Route: 048
     Dates: start: 20080714, end: 20130308
  7. LOXONIN [Concomitant]
     Active Substance: LOXOPROFEN SODIUM
     Indication: OSTEOARTHRITIS
     Route: 048
     Dates: start: 200901
  8. LOXONIN [Concomitant]
     Active Substance: LOXOPROFEN SODIUM
     Indication: SYNOVIAL CYST
     Route: 048
  9. PL [Concomitant]
     Active Substance: ACETAMINOPHEN\CAFFEINE\PROMETHAZINE\SALICYLAMIDE
     Route: 048
     Dates: start: 201005
  10. TALION                             /01587402/ [Concomitant]
     Active Substance: BEPOTASTINE BESYLATE
     Route: 048
     Dates: start: 2008
  11. TALION                             /01587402/ [Concomitant]
     Active Substance: BEPOTASTINE BESYLATE
     Route: 048
     Dates: start: 200812
  12. TALION                             /01587402/ [Concomitant]
     Active Substance: BEPOTASTINE BESYLATE
     Route: 048
     Dates: start: 2009
  13. MEDICON                            /00048102/ [Concomitant]
     Active Substance: DEXTROMETHORPHAN HYDROBROMIDE
     Route: 048
     Dates: start: 201001
  14. CEFZON [Concomitant]
     Active Substance: CEFDINIR
     Route: 048
     Dates: start: 200901
  15. CEFZON [Concomitant]
     Active Substance: CEFDINIR
     Route: 048
     Dates: start: 201001
  16. MEDROL [Suspect]
     Active Substance: METHYLPREDNISOLONE
     Route: 048
     Dates: start: 20071013, end: 20081219
  17. NU-LOTAN [Concomitant]
     Active Substance: LOSARTAN POTASSIUM
     Indication: HYPERTENSION
     Route: 048
     Dates: start: 20070818
  18. PERSANTIN [Concomitant]
     Active Substance: DIPYRIDAMOLE
     Indication: PROPHYLAXIS
     Route: 048
     Dates: end: 20090804
  19. LOXONIN [Concomitant]
     Active Substance: LOXOPROFEN SODIUM
     Route: 048
     Dates: start: 20110209
  20. PL [Concomitant]
     Active Substance: ACETAMINOPHEN\CAFFEINE\PROMETHAZINE\SALICYLAMIDE
     Route: 048
     Dates: start: 2008
  21. PL [Concomitant]
     Active Substance: ACETAMINOPHEN\CAFFEINE\PROMETHAZINE\SALICYLAMIDE
     Route: 048
     Dates: start: 2009
  22. PL [Concomitant]
     Active Substance: ACETAMINOPHEN\CAFFEINE\PROMETHAZINE\SALICYLAMIDE
     Route: 048
     Dates: start: 200910
  23. CEFZON [Concomitant]
     Active Substance: CEFDINIR
     Route: 048
     Dates: start: 200910
  24. CEFZON [Concomitant]
     Active Substance: CEFDINIR
     Route: 048
     Dates: start: 200911
  25. CEFZON [Concomitant]
     Active Substance: CEFDINIR
     Route: 048
     Dates: start: 2010
  26. BUSCOPAN [Concomitant]
     Active Substance: BUTYLSCOPOLAMINE BROMIDE
     Indication: ABDOMINAL PAIN UPPER
     Dosage: UNK UNK, UNKNOWN FREQ.
     Route: 065
     Dates: start: 2010
  27. MEDROL [Suspect]
     Active Substance: METHYLPREDNISOLONE
     Route: 048
     Dates: start: 20140905, end: 20151221
  28. ALFAROL [Concomitant]
     Active Substance: ALFACALCIDOL
     Indication: OSTEOPOROSIS
     Dosage: 0.5 ?G, ONCE DAILY
     Route: 048
     Dates: end: 20111202
  29. LOXONIN [Concomitant]
     Active Substance: LOXOPROFEN SODIUM
     Indication: UPPER RESPIRATORY TRACT INFLAMMATION
     Route: 048
     Dates: start: 200709
  30. PL [Concomitant]
     Active Substance: ACETAMINOPHEN\CAFFEINE\PROMETHAZINE\SALICYLAMIDE
     Route: 048
     Dates: start: 200901
  31. PL [Concomitant]
     Active Substance: ACETAMINOPHEN\CAFFEINE\PROMETHAZINE\SALICYLAMIDE
     Route: 048
     Dates: start: 200904
  32. PL [Concomitant]
     Active Substance: ACETAMINOPHEN\CAFFEINE\PROMETHAZINE\SALICYLAMIDE
     Route: 048
     Dates: start: 2011, end: 2011
  33. TALION                             /01587402/ [Concomitant]
     Active Substance: BEPOTASTINE BESYLATE
     Route: 048
     Dates: start: 201005
  34. MEDICON                            /00048102/ [Concomitant]
     Active Substance: DEXTROMETHORPHAN HYDROBROMIDE
     Indication: PHARYNGITIS
     Route: 048
     Dates: start: 2008
  35. MEDICON                            /00048102/ [Concomitant]
     Active Substance: DEXTROMETHORPHAN HYDROBROMIDE
     Route: 048
     Dates: start: 2009
  36. MEDICON                            /00048102/ [Concomitant]
     Active Substance: DEXTROMETHORPHAN HYDROBROMIDE
     Route: 048
     Dates: start: 2011
  37. CEFZON [Concomitant]
     Active Substance: CEFDINIR
     Route: 048
     Dates: start: 200909
  38. TACROLIMUS. [Suspect]
     Active Substance: TACROLIMUS
     Indication: LUPUS NEPHRITIS
     Route: 048
     Dates: start: 20070822, end: 20080525
  39. MEDROL [Suspect]
     Active Substance: METHYLPREDNISOLONE
     Route: 048
     Dates: start: 20070915, end: 20071012
  40. MEDROL [Suspect]
     Active Substance: METHYLPREDNISOLONE
     Route: 048
     Dates: start: 20110304, end: 20110317
  41. ENDOXAN                            /00021101/ [Concomitant]
     Active Substance: CYCLOPHOSPHAMIDE
     Route: 065
     Dates: start: 20071121, end: 20071121
  42. EPADEL-S [Concomitant]
     Active Substance: ICOSAPENT ETHYL
     Route: 048
     Dates: start: 20080708
  43. BONALON [Concomitant]
     Active Substance: ALENDRONATE SODIUM
     Indication: OSTEOPOROSIS
     Route: 048
     Dates: start: 20071110
  44. LOXONIN [Concomitant]
     Active Substance: LOXOPROFEN SODIUM
     Indication: HEADACHE
     Route: 048
     Dates: start: 2008
  45. PL [Concomitant]
     Active Substance: ACETAMINOPHEN\CAFFEINE\PROMETHAZINE\SALICYLAMIDE
     Route: 048
     Dates: start: 200911
  46. PL [Concomitant]
     Active Substance: ACETAMINOPHEN\CAFFEINE\PROMETHAZINE\SALICYLAMIDE
     Route: 048
     Dates: start: 201001
  47. TALION                             /01587402/ [Concomitant]
     Active Substance: BEPOTASTINE BESYLATE
     Indication: PHARYNGITIS
     Route: 048
     Dates: start: 2008
  48. MEDICON                            /00048102/ [Concomitant]
     Active Substance: DEXTROMETHORPHAN HYDROBROMIDE
     Indication: UPPER RESPIRATORY TRACT INFLAMMATION
     Route: 048
     Dates: start: 2008
  49. CEFZON [Concomitant]
     Active Substance: CEFDINIR
     Indication: UPPER RESPIRATORY TRACT INFLAMMATION
     Route: 048
     Dates: start: 2008
  50. CEFZON [Concomitant]
     Active Substance: CEFDINIR
     Route: 048
     Dates: start: 200904
  51. FIBLAST                            /00801901/ [Concomitant]
     Indication: SKIN ULCER
     Dosage: UNK, UNK, UNKNOWN FREQ.
     Route: 061
  52. GENTACIN [Concomitant]
     Active Substance: GENTAMICIN SULFATE
     Indication: SKIN ULCER
     Dosage: UNK, UNK, UNKNOWN FREQ.
     Route: 065
  53. MEDROL [Suspect]
     Active Substance: METHYLPREDNISOLONE
     Route: 048
     Dates: start: 20100825, end: 20110303
  54. ENDOXAN                            /00021101/ [Concomitant]
     Active Substance: CYCLOPHOSPHAMIDE
     Indication: LUPUS NEPHRITIS
     Route: 065
     Dates: start: 20070921, end: 20070921
  55. LOXONIN [Concomitant]
     Active Substance: LOXOPROFEN SODIUM
     Indication: ABDOMINAL PAIN UPPER
     Route: 048
     Dates: start: 2008
  56. PL [Concomitant]
     Active Substance: ACETAMINOPHEN\CAFFEINE\PROMETHAZINE\SALICYLAMIDE
     Indication: UPPER RESPIRATORY TRACT INFLAMMATION
     Route: 048
     Dates: start: 200709
  57. TALION                             /01587402/ [Concomitant]
     Active Substance: BEPOTASTINE BESYLATE
     Indication: UPPER RESPIRATORY TRACT INFLAMMATION
     Route: 048
     Dates: start: 200709
  58. TALION                             /01587402/ [Concomitant]
     Active Substance: BEPOTASTINE BESYLATE
     Route: 048
     Dates: start: 200901
  59. TALION                             /01587402/ [Concomitant]
     Active Substance: BEPOTASTINE BESYLATE
     Route: 048
     Dates: start: 200910
  60. TALION                             /01587402/ [Concomitant]
     Active Substance: BEPOTASTINE BESYLATE
     Route: 048
     Dates: start: 2010
  61. TALION                             /01587402/ [Concomitant]
     Active Substance: BEPOTASTINE BESYLATE
     Route: 048
     Dates: start: 2011, end: 2011
  62. CEFZON [Concomitant]
     Active Substance: CEFDINIR
     Indication: PHARYNGITIS
     Route: 048
     Dates: start: 2008
  63. STROCAIN                           /00130301/ [Concomitant]
     Indication: ABDOMINAL PAIN UPPER
     Route: 048
     Dates: start: 2008
  64. STROCAIN                           /00130301/ [Concomitant]
     Route: 048
     Dates: start: 2010
  65. METHYCOBAL [Concomitant]
     Active Substance: METHYLCOBALAMIN
     Indication: HEADACHE
     Route: 065
     Dates: start: 20110209
  66. MEDROL [Suspect]
     Active Substance: METHYLPREDNISOLONE
     Route: 048
     Dates: start: 20110304, end: 20110317
  67. MEDROL [Suspect]
     Active Substance: METHYLPREDNISOLONE
     Route: 048
     Dates: start: 20110318, end: 20140904
  68. PANVITAN [Concomitant]
     Indication: PROPHYLAXIS
     Route: 048
  69. GASTER [Concomitant]
     Active Substance: FAMOTIDINE
     Indication: PROPHYLAXIS
     Route: 048
     Dates: end: 20100330
  70. SELBEX [Concomitant]
     Active Substance: TEPRENONE
     Indication: ABDOMINAL PAIN UPPER
     Route: 048
     Dates: start: 20080926, end: 20130308
  71. BENET [Concomitant]
     Active Substance: RISEDRONATE SODIUM
     Indication: PRODUCT USED FOR UNKNOWN INDICATION
     Route: 048
     Dates: end: 20071109
  72. LOXONIN [Concomitant]
     Active Substance: LOXOPROFEN SODIUM
     Indication: MENISCUS INJURY
     Route: 048
     Dates: start: 2009
  73. PL [Concomitant]
     Active Substance: ACETAMINOPHEN\CAFFEINE\PROMETHAZINE\SALICYLAMIDE
     Indication: PHARYNGITIS
     Route: 048
     Dates: start: 2008
  74. TALION                             /01587402/ [Concomitant]
     Active Substance: BEPOTASTINE BESYLATE
     Route: 048
     Dates: start: 200909
  75. TALION                             /01587402/ [Concomitant]
     Active Substance: BEPOTASTINE BESYLATE
     Route: 048
     Dates: start: 200911
  76. TALION                             /01587402/ [Concomitant]
     Active Substance: BEPOTASTINE BESYLATE
     Route: 048
     Dates: start: 201001
  77. MEDICON                            /00048102/ [Concomitant]
     Active Substance: DEXTROMETHORPHAN HYDROBROMIDE
     Route: 048
     Dates: start: 200910
  78. MEDICON                            /00048102/ [Concomitant]
     Active Substance: DEXTROMETHORPHAN HYDROBROMIDE
     Route: 048
     Dates: start: 200911
  79. MEDICON                            /00048102/ [Concomitant]
     Active Substance: DEXTROMETHORPHAN HYDROBROMIDE
     Route: 048
     Dates: start: 2010
  80. MEDICON                            /00048102/ [Concomitant]
     Active Substance: DEXTROMETHORPHAN HYDROBROMIDE
     Route: 048
     Dates: start: 201005
  81. CEFZON [Concomitant]
     Active Substance: CEFDINIR
     Route: 048
     Dates: start: 2009
  82. ASTOMIN                            /00426502/ [Concomitant]
     Active Substance: DIMEMORFAN PHOSPHATE
     Indication: PHARYNGITIS
     Route: 048
     Dates: start: 200904
  83. CIPROXAN                           /00697202/ [Concomitant]
     Active Substance: CIPROFLOXACIN
     Indication: GASTROENTERITIS
     Route: 065
     Dates: start: 2010
  84. ADOAIR [Concomitant]
     Active Substance: FLUTICASONE PROPIONATE\SALMETEROL XINAFOATE
     Indication: COUGH
     Dosage: UNK UNK, UNKNOWN FREQ.
     Route: 065
     Dates: start: 2010
  85. TACROLIMUS. [Suspect]
     Active Substance: TACROLIMUS
     Route: 048
     Dates: start: 20080526
  86. SELBEX [Concomitant]
     Active Substance: TEPRENONE
     Route: 048
     Dates: start: 20140110
  87. TAKEPRON [Concomitant]
     Active Substance: LANSOPRAZOLE
     Indication: PROPHYLAXIS
     Route: 048
     Dates: start: 20100331, end: 20150416
  88. PL [Concomitant]
     Active Substance: ACETAMINOPHEN\CAFFEINE\PROMETHAZINE\SALICYLAMIDE
     Route: 048
     Dates: start: 200812
  89. PL [Concomitant]
     Active Substance: ACETAMINOPHEN\CAFFEINE\PROMETHAZINE\SALICYLAMIDE
     Route: 048
     Dates: start: 200909
  90. TALION                             /01587402/ [Concomitant]
     Active Substance: BEPOTASTINE BESYLATE
     Route: 048
     Dates: start: 200904
  91. MEDICON                            /00048102/ [Concomitant]
     Active Substance: DEXTROMETHORPHAN HYDROBROMIDE
     Route: 048
     Dates: start: 200812
  92. MEDICON                            /00048102/ [Concomitant]
     Active Substance: DEXTROMETHORPHAN HYDROBROMIDE
     Route: 048
     Dates: start: 200901
  93. MEDICON                            /00048102/ [Concomitant]
     Active Substance: DEXTROMETHORPHAN HYDROBROMIDE
     Route: 048
     Dates: start: 200909
  94. CEFZON [Concomitant]
     Active Substance: CEFDINIR
     Route: 048
     Dates: start: 201005
  95. CRAVIT [Concomitant]
     Active Substance: LEVOFLOXACIN
     Indication: PHARYNGITIS
     Route: 065
     Dates: start: 2011
  96. MEDROL [Suspect]
     Active Substance: METHYLPREDNISOLONE
     Indication: LUPUS NEPHRITIS
     Route: 048
     Dates: end: 20070824
  97. MEDROL [Suspect]
     Active Substance: METHYLPREDNISOLONE
     Route: 048
     Dates: start: 20070825, end: 20070914
  98. MEDROL [Suspect]
     Active Substance: METHYLPREDNISOLONE
     Route: 048
     Dates: start: 20070915, end: 20071012
  99. MEDROL [Suspect]
     Active Substance: METHYLPREDNISOLONE
     Route: 048
     Dates: start: 20151222
  100. TAKEPRON [Concomitant]
     Active Substance: LANSOPRAZOLE
     Route: 048
     Dates: start: 20150417
  101. PL [Concomitant]
     Active Substance: ACETAMINOPHEN\CAFFEINE\PROMETHAZINE\SALICYLAMIDE
     Route: 048
     Dates: start: 2010
  102. ISODINE [Concomitant]
     Active Substance: POVIDONE-IODINE
     Indication: UPPER RESPIRATORY TRACT INFLAMMATION
     Dosage: UNK, UNK, UNKNOWN FREQ.
     Route: 061
     Dates: start: 200709
  103. CEFZON [Concomitant]
     Active Substance: CEFDINIR
     Route: 048
     Dates: start: 200812
  104. U-PASTA [Concomitant]
     Indication: INFECTED SKIN ULCER
     Dosage: UNK, UNK, UNKNOWN FREQ.
     Route: 061
     Dates: start: 2010
  105. METHYCOBAL [Concomitant]
     Active Substance: METHYLCOBALAMIN
     Indication: NEUROPATHY PERIPHERAL
     Route: 065
     Dates: start: 2010
  106. BIOFERMIN R [Concomitant]
     Active Substance: DIETARY SUPPLEMENT\PROBIOTICS
     Indication: GASTROENTERITIS
     Route: 048
     Dates: start: 2010

REACTIONS (29)
  - Lower limb fracture [Not Recovered/Not Resolved]
  - Synovial cyst [Not Recovered/Not Resolved]
  - Meniscus injury [Not Recovered/Not Resolved]
  - Cough [Recovering/Resolving]
  - Calculus urinary [Recovered/Resolved]
  - Spinal compression fracture [Unknown]
  - Gastroenteritis [Recovering/Resolving]
  - Glaucoma [Recovering/Resolving]
  - Leiomyoma [Unknown]
  - Infected skin ulcer [Recovering/Resolving]
  - Plantar fasciitis [Unknown]
  - Skin ulcer [Recovering/Resolving]
  - Urinary tract infection [Recovered/Resolved]
  - Ota^s naevus [Recovering/Resolving]
  - Osteoarthritis [Not Recovered/Not Resolved]
  - Nephrolithiasis [Not Recovered/Not Resolved]
  - Ovarian cyst [Unknown]
  - Cough [Recovering/Resolving]
  - Headache [Recovering/Resolving]
  - Abdominal pain upper [Recovering/Resolving]
  - Osteoarthritis [Recovering/Resolving]
  - Foot fracture [Recovering/Resolving]
  - Spondylolisthesis [Unknown]
  - Pharyngitis [Recovering/Resolving]
  - Neuropathy peripheral [Recovering/Resolving]
  - Upper respiratory tract infection [Recovered/Resolved]
  - Pharyngitis [Recovering/Resolving]
  - Abdominal pain upper [Recovering/Resolving]
  - Ota^s naevus [Recovered/Resolved]

NARRATIVE: CASE EVENT DATE: 20070914
